FAERS Safety Report 16761171 (Version 1)
Quarter: 2019Q3

REPORT INFORMATION
  Report Type: Spontaneous
  Country: US (occurrence: US)
  Receive Date: 20190830
  Receipt Date: 20190830
  Transmission Date: 20191005
  Serious: No
  Sender: FDA-Public Use
  Company Number: US-ANIPHARMA-2019-US-004249

PATIENT
  Age: 65 Year
  Sex: Female

DRUGS (2)
  1. IBRANCE [Concomitant]
     Active Substance: PALBOCICLIB
     Dosage: 125MG DAILY 21 DAYS ON AND 7 DAYS OFF
     Route: 065
     Dates: start: 20180921
  2. ARIMIDEX [Suspect]
     Active Substance: ANASTROZOLE
     Indication: PRODUCT USED FOR UNKNOWN INDICATION
     Dosage: DAILY- DOSE UNSPECIFIED
     Route: 065

REACTIONS (3)
  - Dyspepsia [Unknown]
  - Abdominal distension [Unknown]
  - Hiccups [Unknown]
